FAERS Safety Report 9405521 (Version 1)
Quarter: 2013Q3

REPORT INFORMATION
  Report Type: Spontaneous
  Country: GB (occurrence: GB)
  Receive Date: 20130715
  Receipt Date: 20130715
  Transmission Date: 20140515
  Serious: Yes (Disabling)
  Sender: FDA-Public Use
  Company Number: 2013GMK006114

PATIENT
  Age: 61 Year
  Sex: Female
  Weight: 63 kg

DRUGS (5)
  1. TOPIRAMATE [Suspect]
     Indication: PRODUCT USED FOR UNKNOWN INDICATION
     Dates: start: 20130524
  2. CLENIL MODULITE (BECLOMETASONE DIPROPIONATE) [Concomitant]
  3. LANSOPRAZOLE (LANSOPRAZOLE) [Concomitant]
  4. PIZOTIFEN (PIZOTIFEN) [Concomitant]
  5. SALBUTAMOL (SALBUTAMOL) [Concomitant]

REACTIONS (2)
  - Diplopia [None]
  - Migraine [None]
